FAERS Safety Report 17386448 (Version 1)
Quarter: 2020Q1

REPORT INFORMATION
  Report Type: Spontaneous
  Country: US (occurrence: US)
  Receive Date: 20200206
  Receipt Date: 20200206
  Transmission Date: 20200409
  Serious: Yes (Other)
  Sender: FDA-Public Use
  Company Number: US-PFIZER INC-2020049147

PATIENT
  Age: 62 Year
  Sex: Male

DRUGS (3)
  1. MORPHINE SULFATE. [Suspect]
     Active Substance: MORPHINE SULFATE
     Dosage: 15 MG, 2X/DAY
  2. HYDROCODONE [Concomitant]
     Active Substance: HYDROCODONE
     Dosage: 5 MG, 2X/DAY
  3. HYDROCODONE [Concomitant]
     Active Substance: HYDROCODONE
     Dosage: 10 MG, DAILY

REACTIONS (2)
  - Back disorder [Unknown]
  - Neck deformity [Unknown]
